FAERS Safety Report 4723969-4 (Version None)
Quarter: 2005Q3

REPORT INFORMATION
  Report Type: 
  Country: None (occurrence: None)
  Receive Date: 20050721
  Receipt Date: 20050708
  Transmission Date: 20060218
  Serious: Yes (Other)
  Sender: FDA-Public Use
  Company Number: 2005099295

PATIENT
  Age: 64 Year
  Sex: Male

DRUGS (14)
  1. NEURONTIN [Suspect]
     Indication: NEURALGIA
     Dosage: 900 MG (300 MG, 3 IN 1 D), ORAL
     Route: 048
  2. ASPIRIN [Suspect]
     Indication: ILL-DEFINED DISORDER
     Dates: end: 20050101
  3. PLAVIX [Suspect]
     Indication: ILL-DEFINED DISORDER
     Dosage: 75 MG
  4. WARFARIN SODIUM [Suspect]
     Indication: ILL-DEFINED DISORDER
  5. INSULIN [Concomitant]
  6. COREG [Concomitant]
  7. KLOR-CON [Concomitant]
  8. ISOSORBIDE DINITRATE [Concomitant]
  9. ZETIA [Concomitant]
  10. METOLAZONE [Concomitant]
  11. DIGITEX (DIGOXIN) [Concomitant]
  12. ZOCOR [Concomitant]
  13. ZESTRIL [Concomitant]
  14. LASIX [Concomitant]

REACTIONS (13)
  - BLOOD PRESSURE SYSTOLIC DECREASED [None]
  - CRYING [None]
  - DEPRESSION [None]
  - DIZZINESS [None]
  - FEELING ABNORMAL [None]
  - HAEMORRHAGE [None]
  - IMPAIRED HEALING [None]
  - NEURALGIA [None]
  - PAIN [None]
  - SKIN EXFOLIATION [None]
  - SLEEP APNOEA SYNDROME [None]
  - SOMNOLENCE [None]
  - WOUND SECRETION [None]
